FAERS Safety Report 17651846 (Version 1)
Quarter: 2020Q2

REPORT INFORMATION
  Report Type: Report from Study
  Country: GB (occurrence: GB)
  Receive Date: 20200409
  Receipt Date: 20200409
  Transmission Date: 20200713
  Serious: Yes (Other)
  Sender: FDA-Public Use
  Company Number: GB-JNJFOC-20200320496

PATIENT
  Sex: Female

DRUGS (2)
  1. STELARA [Suspect]
     Active Substance: USTEKINUMAB
     Indication: CROHN^S DISEASE
     Route: 058
  2. STELARA [Suspect]
     Active Substance: USTEKINUMAB

REACTIONS (6)
  - Post-traumatic stress disorder [Unknown]
  - Lower respiratory tract infection [Unknown]
  - Abscess [Unknown]
  - Suicidal ideation [Unknown]
  - Crohn^s disease [Unknown]
  - Nasopharyngitis [Unknown]
